FAERS Safety Report 19190325 (Version 1)
Quarter: 2021Q2

REPORT INFORMATION
  Report Type: Spontaneous
  Country: JP (occurrence: JP)
  Receive Date: 20210428
  Receipt Date: 20210428
  Transmission Date: 20210717
  Serious: Yes (Death, Life-Threatening, Hospitalization)
  Sender: FDA-Public Use
  Company Number: JP-ORPHANEU-2018000535

PATIENT

DRUGS (15)
  1. METHYLCOBAL [Concomitant]
     Active Substance: METHYLCOBALAMIN
     Indication: METHYLMALONIC ACIDURIA
     Dosage: 1000 MICROGRAM, BID
     Route: 048
     Dates: end: 20180228
  2. CARBAGLU [Suspect]
     Active Substance: CARGLUMIC ACID
     Dosage: 1200 MG DAILY (DIVIDED IN FOUR)
     Route: 050
     Dates: start: 20180226, end: 20180228
  3. CARBOCISTEINE [Concomitant]
     Active Substance: CARBOCYSTEINE
     Indication: PRODUCT USED FOR UNKNOWN INDICATION
     Dosage: 2709 MG, UNK
  4. MUCOSAL                            /00082801/ [Concomitant]
     Indication: PRODUCT USED FOR UNKNOWN INDICATION
     Dosage: 8 MG, TID
     Route: 048
     Dates: end: 20180228
  5. CARBAGLU [Suspect]
     Active Substance: CARGLUMIC ACID
     Indication: HYPERAMMONAEMIA
     Dosage: 1000 MG DAILY (DIVIDED IN FIVE)
     Route: 050
     Dates: start: 20180223, end: 20180225
  6. ARGININE [Concomitant]
     Active Substance: ARGININE
     Indication: METHYLMALONIC ACIDURIA
     Dosage: 1.5 G, QD
     Dates: start: 20180219, end: 20180228
  7. ARGI U                             /00126102/ [Concomitant]
     Indication: METHYLMALONIC ACIDURIA
     Dosage: 1000 MG, TID
     Route: 048
     Dates: end: 20180228
  8. URALYT U                           /01675401/ [Concomitant]
     Active Substance: POTASSIUM CITRATE\TRISODIUM CITRATE DIHYDRATE
     Indication: METHYLMALONIC ACIDURIA
     Dosage: 3 TABLETS, TID
     Route: 048
     Dates: end: 20180228
  9. MUCODYNE?DS [Concomitant]
     Active Substance: CARBOCYSTEINE
     Indication: PRODUCT USED FOR UNKNOWN INDICATION
     Dosage: 270 MG, TID
     Route: 048
     Dates: end: 20180228
  10. L CARTIN FF [Concomitant]
     Active Substance: LEVOCARNITINE
     Indication: METHYLMALONIC ACIDURIA
     Dosage: 30 ML, TID
     Dates: start: 20180219, end: 20180228
  11. BIOTIN [Concomitant]
     Active Substance: BIOTIN
     Indication: METHYLMALONIC ACIDURIA
     Dosage: 1 MG, TID
     Route: 048
     Dates: end: 20180228
  12. RAPIACTA [Concomitant]
     Active Substance: PERAMIVIR
     Indication: INFLUENZA
     Dosage: 100 MG, QD
     Route: 041
     Dates: start: 20180219, end: 20180228
  13. PANVITAN                           /07504101/ [Concomitant]
     Indication: METHYLMALONIC ACIDURIA
     Dosage: ORAL POWDER, 0.8 G, TID
     Route: 048
     Dates: end: 20180228
  14. PRANLUKAST [Concomitant]
     Active Substance: PRANLUKAST
     Indication: PRODUCT USED FOR UNKNOWN INDICATION
     Dosage: 60 MG, BID
     Route: 048
     Dates: end: 20180228
  15. BENFOTIAMINE [Concomitant]
     Active Substance: BENFOTIAMINE
     Indication: METHYLMALONIC ACIDURIA
     Dosage: 20 MG, TID
     Route: 048
     Dates: end: 20180228

REACTIONS (2)
  - Condition aggravated [Fatal]
  - Multiple organ dysfunction syndrome [Fatal]

NARRATIVE: CASE EVENT DATE: 20180223
